FAERS Safety Report 11071871 (Version 1)
Quarter: 2015Q2

REPORT INFORMATION
  Report Type: Spontaneous
  Country: DE (occurrence: DE)
  Receive Date: 20150428
  Receipt Date: 20150428
  Transmission Date: 20150821
  Serious: Yes (Hospitalization, Other)
  Sender: FDA-Public Use
  Company Number: DE-PFIZER INC-2015062885

PATIENT
  Age: 72 Year
  Sex: Male
  Weight: 70 kg

DRUGS (17)
  1. L-THYROXIN [Concomitant]
     Active Substance: LEVOTHYROXINE SODIUM
     Dosage: 125
  2. BICANORM [Concomitant]
     Active Substance: SODIUM BICARBONATE
  3. SIMVA [Concomitant]
     Dosage: 40 (0-0-1)
  4. RAMIPRIL. [Concomitant]
     Active Substance: RAMIPRIL
     Dosage: 5 (1-0-1)
  5. ASPIRIN. [Concomitant]
     Active Substance: ASPIRIN
     Dosage: 100 (0-1-0)
  6. SUTENT [Suspect]
     Active Substance: SUNITINIB MALATE
     Indication: RENAL CELL CARCINOMA
     Dosage: 50 MG, 1X/DAY (1-0-0)
     Route: 048
     Dates: start: 20081216
  7. L-THYROXIN [Concomitant]
     Active Substance: LEVOTHYROXINE SODIUM
     Dosage: 50 (1-0-0)
  8. AMLODIPINE [Concomitant]
     Active Substance: AMLODIPINE BESYLATE
     Dosage: 5 (1-0-1)
  9. AQUAPHOR [Concomitant]
     Active Substance: PETROLATUM
     Dosage: 10
  10. OMEPRAZOLE. [Concomitant]
     Active Substance: OMEPRAZOLE
     Dosage: 40 1-0-1
  11. TOREM [Concomitant]
     Active Substance: TORSEMIDE
     Dosage: 5 (1-0-0)
  12. NOVAMINSULFON [Concomitant]
     Active Substance: METAMIZOLE
  13. MADOPAR [Concomitant]
     Active Substance: BENSERAZIDE HYDROCHLORIDE\LEVODOPA
     Dosage: 62.5 (1-1-1)
  14. FERROSANOL DUODENAL [Concomitant]
     Active Substance: FERROGLYCINE SULFATE
     Dosage: 0-1-0
  15. METOHEXAL SUCC [Concomitant]
     Active Substance: METOPROLOL SUCCINATE
     Dosage: 47.5
  16. OMEP [Concomitant]
     Active Substance: OMEPRAZOLE
     Dosage: 40
  17. BELOC [Concomitant]
     Active Substance: METOPROLOL TARTRATE
     Dosage: 47.5 (1-0-1)

REACTIONS (1)
  - Anal haemorrhage [Unknown]

NARRATIVE: CASE EVENT DATE: 201409
